FAERS Safety Report 10905342 (Version 1)
Quarter: 2015Q1

REPORT INFORMATION
  Report Type: Spontaneous
  Country: US (occurrence: None)
  Receive Date: 20150309
  Receipt Date: 20150309
  Transmission Date: 20150721
  Serious: Yes (Disabling)
  Sender: FDA-Public Use
  Company Number: None

PATIENT
  Age: 41 Year
  Sex: Female
  Weight: 90.72 kg

DRUGS (4)
  1. OMEGAS [Concomitant]
  2. CALCIUM [Concomitant]
     Active Substance: CALCIUM
  3. MIRENA [Suspect]
     Active Substance: LEVONORGESTREL
     Dates: start: 20140929, end: 20150304
  4. PRENATAL [Concomitant]
     Active Substance: VITAMINS

REACTIONS (4)
  - Back pain [None]
  - Abdominal distension [None]
  - Arthralgia [None]
  - Feeling abnormal [None]

NARRATIVE: CASE EVENT DATE: 20150304
